FAERS Safety Report 18423609 (Version 1)
Quarter: 2020Q4

REPORT INFORMATION
  Report Type: Spontaneous
  Country: CN (occurrence: CN)
  Receive Date: 20201024
  Receipt Date: 20201024
  Transmission Date: 20210114
  Serious: Yes (Other)
  Sender: FDA-Public Use
  Company Number: CN-B.I. PHARMACEUTICALS,INC./RIDGEFIELD-2020-BI-055537

PATIENT
  Age: 68 Year
  Sex: Female
  Weight: 52.5 kg

DRUGS (10)
  1. SODIUM CHLORIDE. [Concomitant]
     Active Substance: SODIUM CHLORIDE
     Dates: start: 20201005, end: 20201013
  2. CEFUROXIME SODIUM. [Concomitant]
     Active Substance: CEFUROXIME SODIUM
     Indication: LIMB INJURY
     Route: 042
     Dates: start: 20201005, end: 20201006
  3. BRICANYL [Suspect]
     Active Substance: TERBUTALINE SULFATE
     Indication: INCREASED VISCOSITY OF BRONCHIAL SECRETION
     Route: 055
     Dates: start: 20201005, end: 20201011
  4. ATROVENT [Suspect]
     Active Substance: IPRATROPIUM BROMIDE
     Indication: INCREASED VISCOSITY OF BRONCHIAL SECRETION
     Route: 055
     Dates: start: 20201005, end: 20201011
  5. DIFENE [Suspect]
     Active Substance: DICLOFENAC SODIUM
     Indication: ANALGESIC THERAPY
     Route: 048
     Dates: start: 20201005, end: 20201011
  6. VITAMIN B6 [Concomitant]
     Active Substance: PYRIDOXINE HYDROCHLORIDE
     Indication: FLUID REPLACEMENT
     Dates: start: 20201005, end: 20201013
  7. SODIUM CHLORIDE. [Concomitant]
     Active Substance: SODIUM CHLORIDE
     Indication: VEHICLE SOLUTION USE
     Dates: start: 20201005, end: 20201011
  8. SODIUM CHLORIDE. [Concomitant]
     Active Substance: SODIUM CHLORIDE
     Dates: start: 20201005, end: 20201006
  9. VITAMIN C [Concomitant]
     Active Substance: ASCORBIC ACID
     Indication: PRODUCT USED FOR UNKNOWN INDICATION
     Dates: start: 20201005, end: 20201013
  10. PULMICORT TURBUHALER [Suspect]
     Active Substance: BUDESONIDE
     Indication: INCREASED VISCOSITY OF BRONCHIAL SECRETION
     Route: 055
     Dates: start: 20201005, end: 20201011

REACTIONS (1)
  - Hepatic enzyme increased [Unknown]

NARRATIVE: CASE EVENT DATE: 20201012
